FAERS Safety Report 25221373 (Version 3)
Quarter: 2025Q2

REPORT INFORMATION
  Report Type: Spontaneous
  Country: BR (occurrence: BR)
  Receive Date: 20250421
  Receipt Date: 20250509
  Transmission Date: 20250717
  Serious: Yes (Hospitalization)
  Sender: MERCK SHARP & DOHME LLC
  Company Number: BR-009507513-2276391

PATIENT
  Age: 36 Year
  Sex: Male

DRUGS (6)
  1. TEMOZOLOMIDE [Suspect]
     Active Substance: TEMOZOLOMIDE
     Indication: Malignant nervous system neoplasm
  2. TEMOZOLOMIDE [Suspect]
     Active Substance: TEMOZOLOMIDE
     Indication: Malignant nervous system neoplasm
     Dosage: 245 MG/DAY FOR 5 DAYS
     Route: 048
  3. TEMOZOLOMIDE [Suspect]
     Active Substance: TEMOZOLOMIDE
     Indication: Malignant nervous system neoplasm
     Dosage: 245 MG/DAY FOR 5 DAYS
     Route: 048
  4. TEMOZOLOMIDE [Suspect]
     Active Substance: TEMOZOLOMIDE
     Indication: Malignant nervous system neoplasm
     Dosage: 245 MG/DAY FOR 5 DAYS
     Route: 048
  5. TEMOZOLOMIDE [Suspect]
     Active Substance: TEMOZOLOMIDE
     Indication: Malignant nervous system neoplasm
     Dosage: 245 MG/DAY FOR 5 DAYS
     Route: 048
  6. TEMOZOLOMIDE [Suspect]
     Active Substance: TEMOZOLOMIDE
     Indication: Malignant nervous system neoplasm
     Dosage: 245 MG/DAY FOR 5 DAYS
     Route: 048

REACTIONS (2)
  - Febrile neutropenia [Recovered/Resolved]
  - Ataxia [Unknown]
